FAERS Safety Report 7480345-1 (Version None)
Quarter: 2011Q2

REPORT INFORMATION
  Report Type: 
  Country: None (occurrence: None)
  Receive Date: 20110504
  Receipt Date: 20110426
  Transmission Date: 20111010
  Serious: Yes (Life-Threatening)
  Sender: FDA-Public Use
  Company Number: WWISSUE-589

PATIENT
  Sex: Male

DRUGS (7)
  1. LEVAQUIN [Concomitant]
  2. PHENERGAN WITH CODEINE COUGH SYRUP [Concomitant]
  3. DECADRON [Concomitant]
  4. MEDROL [Concomitant]
  5. ALBUTEROL INHALER [Concomitant]
  6. CEFTRIAXONE [Suspect]
     Indication: PNEUMONIA
     Dosage: 1 INJECTION (1G/10ML)
     Dates: start: 20110414
  7. CEFTRIAXONE [Suspect]
     Indication: BRONCHITIS
     Dosage: 1 INJECTION (1G/10ML)
     Dates: start: 20110414

REACTIONS (4)
  - SWELLING FACE [None]
  - THROAT TIGHTNESS [None]
  - DYSPNOEA [None]
  - LARYNGITIS [None]
